FAERS Safety Report 4646446-8 (Version None)
Quarter: 2005Q2

REPORT INFORMATION
  Report Type: 
  Country: None (occurrence: None)
  Receive Date: 20050427
  Receipt Date: 20040302
  Transmission Date: 20051028
  Serious: No
  Sender: FDA-Public Use
  Company Number: US-GLAXOSMITHKLINE-A0500859A

PATIENT
  Age: 43 Year
  Sex: Female
  Weight: 64.5 kg

DRUGS (7)
  1. FLOVENT [Suspect]
     Indication: ASTHMA
     Dosage: 110MCG TWICE PER DAY
     Route: 055
     Dates: start: 20000930
  2. PREDNISONE [Suspect]
     Indication: DRUG USE FOR UNKNOWN INDICATION
     Route: 048
  3. PATANOL [Concomitant]
     Route: 031
  4. CLARINEX [Concomitant]
     Dosage: 5MG PER DAY
  5. MAXAIR [Concomitant]
     Dosage: 2PUFF AS REQUIRED
     Route: 055
  6. LAMICTAL [Concomitant]
  7. NABUMETONE [Concomitant]

REACTIONS (1)
  - CATARACT SUBCAPSULAR [None]
